FAERS Safety Report 5752824-6 (Version None)
Quarter: 2008Q2

REPORT INFORMATION
  Report Type: 
  Country: None (occurrence: None)
  Receive Date: 20080529
  Receipt Date: 20080520
  Transmission Date: 20081010
  Serious: Yes (Life-Threatening, Hospitalization)
  Sender: FDA-Public Use
  Company Number: JP-PFIZER INC-2008028952

PATIENT
  Sex: Male
  Weight: 70 kg

DRUGS (8)
  1. EPLERENONE [Suspect]
     Route: 048
     Dates: start: 20080318, end: 20080330
  2. LOSARTAN POTASSIUM [Suspect]
     Dosage: TEXT:1 TABLET;-FREQ:ONCE DAILY
     Route: 048
     Dates: start: 20080318, end: 20080330
  3. HYDROCHLOROTHIAZIDE [Suspect]
  4. AMIODARONE HCL [Suspect]
     Route: 048
     Dates: start: 20080318, end: 20080330
  5. LASIX [Suspect]
     Route: 048
     Dates: start: 20080318, end: 20080330
  6. ALOSITOL [Suspect]
     Route: 048
     Dates: start: 20080318, end: 20080330
  7. ARTIST [Suspect]
     Route: 048
     Dates: start: 20080318, end: 20080330
  8. WARFARIN SODIUM [Suspect]
     Route: 048
     Dates: start: 20080318, end: 20080330

REACTIONS (2)
  - HEPATITIS FULMINANT [None]
  - RENAL FAILURE ACUTE [None]
